FAERS Safety Report 25168349 (Version 1)
Quarter: 2025Q2

REPORT INFORMATION
  Report Type: Spontaneous
  Country: FR (occurrence: FR)
  Receive Date: 20250407
  Receipt Date: 20250407
  Transmission Date: 20250716
  Serious: Yes (Hospitalization)
  Sender: FRESENIUS KABI
  Company Number: None

PATIENT
  Age: 59 Year
  Sex: Male
  Weight: 69 kg

DRUGS (51)
  1. TOCILIZUMAB [Suspect]
     Active Substance: TOCILIZUMAB
     Indication: Colitis
     Route: 042
     Dates: start: 20250116, end: 20250116
  2. TOCILIZUMAB [Suspect]
     Active Substance: TOCILIZUMAB
     Route: 042
     Dates: start: 20250203, end: 20250203
  3. OPDIVO [Suspect]
     Active Substance: NIVOLUMAB
     Indication: Metastatic malignant melanoma
     Route: 042
     Dates: start: 20241107, end: 20241107
  4. OPDIVO [Suspect]
     Active Substance: NIVOLUMAB
     Route: 042
     Dates: start: 20241128, end: 20241128
  5. YERVOY [Suspect]
     Active Substance: IPILIMUMAB
     Indication: Metastatic malignant melanoma
     Route: 042
     Dates: start: 20241107, end: 20241107
  6. YERVOY [Suspect]
     Active Substance: IPILIMUMAB
     Route: 042
     Dates: start: 20241128, end: 20241128
  7. KETAMINE [Suspect]
     Active Substance: KETAMINE
     Indication: Cancer pain
     Dosage: 2ML/H
     Route: 042
     Dates: start: 20250104, end: 20250106
  8. KETAMINE [Suspect]
     Active Substance: KETAMINE
     Route: 042
     Dates: start: 20250106, end: 20250109
  9. KETAMINE [Suspect]
     Active Substance: KETAMINE
     Route: 042
     Dates: start: 20250109, end: 20250203
  10. PAROXETINE HYDROCHLORIDE [Suspect]
     Active Substance: PAROXETINE HYDROCHLORIDE
     Indication: Depression
     Route: 048
     Dates: start: 20250122, end: 20250204
  11. LOXAPINE [Suspect]
     Active Substance: LOXAPINE
     Indication: Anxiety
     Dosage: 5MG MORNING, 5MG MIDDAY, 10MG EVENING
     Route: 048
     Dates: start: 20250122, end: 20250216
  12. METHYLPREDNISOLONE [Concomitant]
     Active Substance: METHYLPREDNISOLONE
     Indication: Colitis
     Route: 042
     Dates: start: 20250104, end: 20250113
  13. METHYLPREDNISOLONE [Concomitant]
     Active Substance: METHYLPREDNISOLONE
     Route: 042
     Dates: start: 20250113, end: 20250115
  14. METHYLPREDNISOLONE [Concomitant]
     Active Substance: METHYLPREDNISOLONE
     Route: 042
     Dates: start: 20250116, end: 20250118
  15. METHYLPREDNISOLONE [Concomitant]
     Active Substance: METHYLPREDNISOLONE
     Route: 042
     Dates: start: 20250118, end: 20250120
  16. METHYLPREDNISOLONE [Concomitant]
     Active Substance: METHYLPREDNISOLONE
     Route: 042
     Dates: start: 20250120, end: 20250122
  17. METHYLPREDNISOLONE [Concomitant]
     Active Substance: METHYLPREDNISOLONE
     Route: 042
     Dates: start: 20250122, end: 20250211
  18. FIDAXOMICIN [Concomitant]
     Active Substance: FIDAXOMICIN
     Indication: Product used for unknown indication
     Dosage: 200MG MATIN ET SOIR
     Route: 048
     Dates: start: 20250123, end: 20250201
  19. FIDAXOMICIN [Concomitant]
     Active Substance: FIDAXOMICIN
     Route: 048
     Dates: start: 20250204, end: 20250211
  20. FIDAXOMICIN [Concomitant]
     Active Substance: FIDAXOMICIN
     Route: 048
     Dates: start: 20250211, end: 20250217
  21. MORPHINE [Concomitant]
     Active Substance: MORPHINE
     Indication: Cancer pain
     Route: 042
     Dates: start: 20250104, end: 20250207
  22. MIDAZOLAM [Concomitant]
     Active Substance: MIDAZOLAM
     Indication: Anxiety
     Dosage: 0.7MG/H OVER 12H AT NIGHT
     Route: 042
     Dates: start: 20250109, end: 20250111
  23. MIDAZOLAM [Concomitant]
     Active Substance: MIDAZOLAM
     Indication: Insomnia
     Dosage: 0.5MG/H OVER 12H AT NIGHT
     Route: 042
     Dates: start: 20250111, end: 20250113
  24. MIDAZOLAM [Concomitant]
     Active Substance: MIDAZOLAM
     Dosage: 0.2MG/H OVER 12H AT NIGHT
     Route: 042
     Dates: start: 20250114, end: 20250121
  25. MIDAZOLAM [Concomitant]
     Active Substance: MIDAZOLAM
     Dosage: 0.3MG/H OVER 12H AT NIGHT
     Route: 042
     Dates: start: 20250121, end: 20250127
  26. MIDAZOLAM [Concomitant]
     Active Substance: MIDAZOLAM
     Dosage: 0.3MG/H OVER 9H AT NIGHT
     Route: 042
     Dates: start: 20250127, end: 20250130
  27. MIDAZOLAM [Concomitant]
     Active Substance: MIDAZOLAM
     Dosage: 0.5MG/H OVER 9H AT NIGHT
     Route: 042
     Dates: start: 20250130, end: 20250212
  28. CANDESARTAN CILEXETIL [Concomitant]
     Active Substance: CANDESARTAN CILEXETIL
     Indication: Hypertension
     Route: 048
     Dates: end: 20250203
  29. HYDROCHLOROTHIAZIDE [Concomitant]
     Active Substance: HYDROCHLOROTHIAZIDE
     Indication: Hypertension
     Route: 048
     Dates: end: 20250212
  30. NICOPATCHLIB 21 mg/24 hours, transdermal device [Concomitant]
     Indication: Tobacco withdrawal symptoms
     Route: 062
     Dates: start: 20250104
  31. PROPRANOLOL [Concomitant]
     Active Substance: PROPRANOLOL HYDROCHLORIDE
     Indication: Hypertension
     Route: 048
     Dates: end: 20250204
  32. PHLOROGLUCINOL [Concomitant]
     Active Substance: PHLOROGLUCINOL
     Indication: Product used for unknown indication
     Dosage: 2 TABLETS MORNING, NOON AND EVENING
     Route: 048
     Dates: start: 20250104, end: 20250217
  33. MONTMORILLONITE [Concomitant]
     Active Substance: MONTMORILLONITE
     Indication: Diarrhoea
     Dosage: 3G SACHET MORNING AND EVENING
     Route: 048
     Dates: start: 20250104, end: 20250216
  34. PANTOPRAZOLE [Concomitant]
     Active Substance: PANTOPRAZOLE
     Indication: Gastritis
     Route: 048
     Dates: start: 20250104, end: 20250110
  35. PANTOPRAZOLE [Concomitant]
     Active Substance: PANTOPRAZOLE
     Route: 048
     Dates: start: 20250110
  36. RACECADOTRIL [Concomitant]
     Active Substance: RACECADOTRIL
     Indication: Diarrhoea
     Dosage: 100MG MORNING, NOON AND EVENING
     Route: 048
     Dates: start: 20250104, end: 20250217
  37. CHOLECALCIFEROL [Concomitant]
     Active Substance: CHOLECALCIFEROL
     Indication: Vitamin D deficiency
     Dosage: ONCE PER WEEK
     Route: 048
     Dates: start: 20250104
  38. FOLIC ACID [Concomitant]
     Active Substance: FOLIC ACID
     Indication: Anaemia folate deficiency
     Route: 048
     Dates: start: 20250104
  39. TINZAPARIN SODIUM ((MAMMAL/PIG/INTESTINAL MUCOSA)) [Concomitant]
     Indication: Thrombosis prophylaxis
     Route: 058
     Dates: start: 20250104, end: 20250217
  40. CORN OIL, OXIDIZED [Concomitant]
     Active Substance: CORN OIL, OXIDIZED
     Indication: Dry mouth
     Dosage: 10H-14H-17H-21H
     Route: 042
     Dates: start: 20250104
  41. POTASSIUM CHLORIDE [Concomitant]
     Active Substance: POTASSIUM CHLORIDE
     Indication: Hypokalaemic syndrome
     Dosage: 2 TABLETS MORNING, NOON AND EVENING
     Route: 048
     Dates: start: 20250104, end: 20250109
  42. POTASSIUM CHLORIDE [Concomitant]
     Active Substance: POTASSIUM CHLORIDE
     Dosage: 1 CAPSULE MORNING, NOON AND EVENING
     Route: 048
     Dates: start: 20250212, end: 20250219
  43. MAGNESIUM [Concomitant]
     Active Substance: MAGNESIUM
     Indication: Magnesium deficiency
     Dosage: 1 SACHET MORNING, NOON AND EVENING
     Route: 048
     Dates: start: 20250104, end: 20250106
  44. BEPANTHEN 5 %, pommade [Concomitant]
     Indication: Product used for unknown indication
     Dosage: 4 APPLICATIONS PER DAY
     Route: 003
     Dates: start: 20250125
  45. VERSATIS 5%, medicated plaster [Concomitant]
     Indication: Cancer pain
     Route: 062
     Dates: start: 20250127
  46. AMPHOTERICIN B [Concomitant]
     Active Substance: AMPHOTERICIN B
     Indication: Oral candidiasis
     Dosage: 1 MOUTHWASH MORNING, NOON AND NIGHT
     Route: 048
     Dates: start: 20250203, end: 20250217
  47. PIPERACILLIN SODIUM\TAZOBACTAM SODIUM [Concomitant]
     Active Substance: PIPERACILLIN SODIUM\TAZOBACTAM SODIUM
     Indication: Product used for unknown indication
     Dosage: 1 VIAL 4 TIMES A DAY
     Route: 042
     Dates: start: 20250203, end: 20250204
  48. MERONEM 1 g, powder for solution for injection (I.V.) [Concomitant]
     Indication: Product used for unknown indication
     Dosage: 1G EVERY 8 HOURS
     Route: 042
     Dates: start: 20250204, end: 20250211
  49. ALPRAZOLAM [Concomitant]
     Active Substance: ALPRAZOLAM
     Indication: Product used for unknown indication
     Route: 048
     Dates: start: 20250205, end: 20250206
  50. SKENAN [Concomitant]
     Active Substance: MORPHINE SULFATE
     Indication: Product used for unknown indication
     Dosage: 30MG ON MORNING AND EVENING
     Route: 048
     Dates: start: 20250207, end: 20250212
  51. INFLIXIMAB [Concomitant]
     Active Substance: INFLIXIMAB
     Indication: Product used for unknown indication
     Route: 042
     Dates: start: 20250210, end: 20250210

REACTIONS (2)
  - Cholestasis [Not Recovered/Not Resolved]
  - Hepatic cytolysis [Not Recovered/Not Resolved]

NARRATIVE: CASE EVENT DATE: 20250205
